FAERS Safety Report 20002116 (Version 1)
Quarter: 2021Q4

REPORT INFORMATION
  Report Type: Spontaneous
  Country: US (occurrence: US)
  Receive Date: 20211027
  Receipt Date: 20211027
  Transmission Date: 20220303
  Serious: No
  Sender: FDA-Public Use
  Company Number: 2021A770041

PATIENT
  Age: 32745 Day
  Sex: Female
  Weight: 52.2 kg

DRUGS (2)
  1. SYMBICORT [Suspect]
     Active Substance: BUDESONIDE\FORMOTEROL FUMARATE DIHYDRATE
     Indication: Dyspnoea
     Dosage: 80/4.5MCG TWO RESPIRATORY INHALATIONS TWICE A DAY
     Route: 055
     Dates: start: 20210909, end: 20210920
  2. SYMBICORT [Suspect]
     Active Substance: BUDESONIDE\FORMOTEROL FUMARATE DIHYDRATE
     Indication: Dyspnoea
     Dosage: 80/4.5MCG TWO RESPIRATORY INHALATIONS TWICE A DAY
     Route: 055
     Dates: start: 20210927

REACTIONS (7)
  - Cough [Unknown]
  - Drug delivery system issue [Unknown]
  - Product taste abnormal [Unknown]
  - Product odour abnormal [Unknown]
  - Intentional product misuse [Unknown]
  - Drug dose omission by device [Unknown]
  - Therapy cessation [Recovered/Resolved with Sequelae]

NARRATIVE: CASE EVENT DATE: 20210920
